FAERS Safety Report 6124815-7 (Version None)
Quarter: 2009Q1

REPORT INFORMATION
  Report Type: 
  Country: None (occurrence: None)
  Receive Date: 20090319
  Receipt Date: 20090311
  Transmission Date: 20090719
  Serious: Yes (Other)
  Sender: FDA-Public Use
  Company Number: PHHY2009DE09345

PATIENT
  Sex: Female

DRUGS (1)
  1. VOLTAREN [Suspect]
     Dosage: FOR 40 DAYS, DAILY USE
     Route: 048

REACTIONS (2)
  - RESTLESS LEGS SYNDROME [None]
  - TINNITUS [None]
